FAERS Safety Report 8089280-1 (Version None)
Quarter: 2012Q1

REPORT INFORMATION
  Report Type: 
  Country: None (occurrence: None)
  Receive Date: 20120128
  Receipt Date: 20110801
  Transmission Date: 20120608
  Serious: No
  Sender: FDA-Public Use
  Company Number: US-ABBOTT-11P-163-0719363-00

PATIENT
  Age: 48 Year
  Sex: Female

DRUGS (9)
  1. HUMIRA [Suspect]
     Indication: PSORIATIC ARTHROPATHY
     Dates: start: 20071201, end: 20100501
  2. PRILOSEC [Concomitant]
     Indication: GASTRIC DISORDER
  3. PLAQUENIL [Concomitant]
     Indication: PRODUCT USED FOR UNKNOWN INDICATION
  4. HUMIRA [Suspect]
     Dates: start: 20110601
  5. DAYPRO [Concomitant]
     Indication: PRODUCT USED FOR UNKNOWN INDICATION
     Dosage: 800MG X 2 TAB QD
  6. PRILOSEC [Concomitant]
     Indication: GASTROOESOPHAGEAL REFLUX DISEASE
  7. HUMIRA [Suspect]
     Dates: start: 20100501
  8. LYRICA [Concomitant]
     Indication: PAIN
     Dosage: 2 AT BEDTIME
  9. LYRICA [Concomitant]
     Dates: start: 20110708

REACTIONS (5)
  - INFECTION SUSCEPTIBILITY INCREASED [None]
  - RASH PUSTULAR [None]
  - PSORIASIS [None]
  - WEIGHT DECREASED [None]
  - PAIN [None]
